FAERS Safety Report 7057785-8 (Version None)
Quarter: 2010Q4

REPORT INFORMATION
  Report Type: 
  Country: None (occurrence: None)
  Receive Date: 20101022
  Receipt Date: 20101012
  Transmission Date: 20110411
  Serious: Yes (Other)
  Sender: FDA-Public Use
  Company Number: GB-PFIZER INC-2010111374

PATIENT
  Age: 75 Year
  Sex: Female
  Weight: 57 kg

DRUGS (7)
  1. XALATAN [Suspect]
     Indication: GLAUCOMA
     Dosage: 50 UG, 1X/DAY AT NIGHT
     Dates: start: 20100323, end: 20100902
  2. ACETAMINOPHEN AND CODEINE PHOSPHATE [Concomitant]
     Indication: PAIN
     Dosage: UNK, 4X/DAY
     Route: 048
     Dates: start: 20100511
  3. ATORVASTATIN [Concomitant]
     Indication: TRANSIENT ISCHAEMIC ATTACK
     Dosage: 20 UNK, 1X/DAY
     Route: 048
     Dates: start: 20080311
  4. ATORVASTATIN [Concomitant]
     Indication: BLOOD CHOLESTEROL
  5. SALBUTAMOL [Concomitant]
     Indication: ASTHMA
     Dosage: 2 DF, AS NEEDED
     Route: 055
     Dates: start: 20080104
  6. BUDESONIDE [Concomitant]
     Indication: ASTHMA
     Dosage: 2 DF, 2X/DAY
     Route: 055
     Dates: start: 20071008
  7. ACETYLSALICYLIC ACID [Concomitant]
     Indication: TRANSIENT ISCHAEMIC ATTACK
     Dosage: 75 UNK, 1X/DAY, IN MORNING
     Route: 048
     Dates: start: 20031013

REACTIONS (2)
  - ARTHRITIS [None]
  - HEADACHE [None]
